FAERS Safety Report 5114173-9 (Version None)
Quarter: 2006Q3

REPORT INFORMATION
  Report Type: 
  Country: None (occurrence: None)
  Receive Date: 20060920
  Receipt Date: 20060907
  Transmission Date: 20061208
  Serious: Yes (Hospitalization)
  Sender: FDA-Public Use
  Company Number: 2006109543

PATIENT
  Age: 71 Year
  Sex: Male
  Weight: 65 kg

DRUGS (8)
  1. SUTENT [Suspect]
     Indication: GASTROINTESTINAL STROMAL TUMOUR
     Dosage: 50 MG (50 MG, 1 IN 1 D), ORAL
     Route: 048
     Dates: start: 20060829, end: 20060905
  2. RAMIPRIL [Concomitant]
  3. FRAXIPARINA      (NADROPARIN CALCIUM) [Concomitant]
  4. CREON [Concomitant]
  5. OMNIC   (TAMSULOSIN HYDROCHLORIDE) [Concomitant]
  6. CIPROFLOXACIN [Concomitant]
  7. DELTACORTENE                (PREDNISONE) [Concomitant]
  8. LIMPIDEX    (LANSOPRAZOLE) [Concomitant]

REACTIONS (1)
  - INTESTINAL OBSTRUCTION [None]
